FAERS Safety Report 5997677-6 (Version None)
Quarter: 2008Q4

REPORT INFORMATION
  Report Type: 
  Country: None (occurrence: None)
  Receive Date: 20081212
  Receipt Date: 20081117
  Transmission Date: 20090506
  Serious: No
  Sender: FDA-Public Use
  Company Number: US-ABBOTT-08P-163-0488384-00

PATIENT
  Sex: Male
  Weight: 101.24 kg

DRUGS (3)
  1. HUMIRA [Suspect]
     Indication: RHEUMATOID ARTHRITIS
     Route: 058
     Dates: start: 20080101
  2. PREDNISONE TAB [Concomitant]
     Indication: DRUG USE FOR UNKNOWN INDICATION
     Route: 048
  3. PREDNISONE TAB [Concomitant]
     Route: 048
     Dates: start: 20081109

REACTIONS (4)
  - ACNE [None]
  - ARTHRALGIA [None]
  - JOINT SWELLING [None]
  - RHEUMATOID ARTHRITIS [None]
